FAERS Safety Report 5089025-3 (Version None)
Quarter: 2006Q3

REPORT INFORMATION
  Report Type: 
  Country: None (occurrence: None)
  Receive Date: 20060822
  Receipt Date: 20060808
  Transmission Date: 20061208
  Serious: Yes (Hospitalization)
  Sender: FDA-Public Use
  Company Number: 163-20785-06080292

PATIENT
  Age: 51 Year
  Sex: Female

DRUGS (1)
  1. THALOMID [Suspect]
     Indication: MULTIPLE MYELOMA
     Dosage: 50 - 100MG, DAILY, ORAL
     Route: 048
     Dates: start: 20031230

REACTIONS (3)
  - COLD SWEAT [None]
  - COUGH [None]
  - PYREXIA [None]
